FAERS Safety Report 6229389-8 (Version None)
Quarter: 2009Q2

REPORT INFORMATION
  Report Type: 
  Country: None (occurrence: None)
  Receive Date: 20090615
  Receipt Date: 20090603
  Transmission Date: 20091009
  Serious: Yes (Hospitalization, Other)
  Sender: FDA-Public Use
  Company Number: US-AMGEN-QUU350007

PATIENT
  Sex: Female

DRUGS (2)
  1. ENBREL [Suspect]
     Indication: RHEUMATOID ARTHRITIS
     Route: 058
     Dates: start: 20080111
  2. ENBREL [Suspect]
     Indication: CROHN'S DISEASE

REACTIONS (10)
  - ABDOMINAL HERNIA [None]
  - ARTHRALGIA [None]
  - DYSPNOEA [None]
  - GAIT DISTURBANCE [None]
  - GASTRIC ULCER HAEMORRHAGE [None]
  - JOINT SWELLING [None]
  - PULMONARY EMBOLISM [None]
  - RHEUMATOID ARTHRITIS [None]
  - THROMBOSIS [None]
  - WOUND INFECTION STAPHYLOCOCCAL [None]
